FAERS Safety Report 18473226 (Version 2)
Quarter: 2021Q1

REPORT INFORMATION
  Report Type: Report from Study
  Country: KR (occurrence: KR)
  Receive Date: 20201106
  Receipt Date: 20210223
  Transmission Date: 20210419
  Serious: Yes (Hospitalization)
  Sender: FDA-Public Use
  Company Number: KR-ELI_LILLY_AND_COMPANY-KR202011000725

PATIENT
  Age: 62 Year
  Sex: Male
  Weight: 80.5 kg

DRUGS (3)
  1. PACLITAXEL. [Concomitant]
     Active Substance: PACLITAXEL
     Indication: GASTRIC CANCER
     Dosage: 80 MG/M2, CYCLICAL (Q2W)
     Route: 042
     Dates: start: 20190603, end: 20191113
  2. CYRAMZA [Suspect]
     Active Substance: RAMUCIRUMAB
     Indication: GASTRIC CANCER
     Dosage: 8 MG/KG, CYCLICAL (Q2W)
     Route: 042
     Dates: start: 20190603, end: 20191113
  3. PACLITAXEL. [Concomitant]
     Active Substance: PACLITAXEL
     Dosage: 70 MG/M2, CYCLICAL
     Route: 042
     Dates: start: 20190619

REACTIONS (1)
  - Urinary tract infection [Recovered/Resolved]

NARRATIVE: CASE EVENT DATE: 20191113
